FAERS Safety Report 16583249 (Version 3)
Quarter: 2019Q3

REPORT INFORMATION
  Report Type: Report from Study
  Country: CZ (occurrence: CZ)
  Receive Date: 20190717
  Receipt Date: 20190930
  Transmission Date: 20191004
  Serious: Yes (Life-Threatening, Other)
  Sender: FDA-Public Use
  Company Number: CZ-AUROBINDO-AUR-APL-2016-06515

PATIENT
  Age: 53 Year
  Sex: Male

DRUGS (7)
  1. ALPRAZOLAM. [Suspect]
     Active Substance: ALPRAZOLAM
     Indication: DELUSIONAL DISORDER, UNSPECIFIED TYPE
     Dosage: 1 MILLIGRAM, UNK
     Route: 065
  2. OLANZAPINE 5MG [Suspect]
     Active Substance: OLANZAPINE
     Indication: DELUSION
     Dosage: 5 MILLIGRAM, UNK
     Route: 065
  3. CHLORPROTHIXENE [Concomitant]
     Active Substance: CHLORPROTHIXENE
     Indication: INTELLECTUAL DISABILITY
     Dosage: 250 MILLIGRAM, UNK
     Route: 065
  4. SERTRALINE [Concomitant]
     Active Substance: SERTRALINE HYDROCHLORIDE
     Indication: DELUSION
     Dosage: 100 MILLIGRAM
     Route: 065
  5. OLANZAPINE 5MG [Suspect]
     Active Substance: OLANZAPINE
     Indication: DELUSIONAL DISORDER, UNSPECIFIED TYPE
  6. OLANZAPINE 5MG [Suspect]
     Active Substance: OLANZAPINE
     Indication: INTELLECTUAL DISABILITY
     Dosage: 10 MILLIGRAM, UNK
     Route: 065
  7. LEVOMEPROMAZINE [Concomitant]
     Active Substance: LEVOMEPROMAZINE
     Indication: INTELLECTUAL DISABILITY
     Dosage: 125 MILLIGRAM, UNK
     Route: 065

REACTIONS (6)
  - Weight increased [Unknown]
  - Body mass index increased [Unknown]
  - Product use in unapproved indication [Unknown]
  - Pulmonary embolism [Unknown]
  - Deep vein thrombosis [Unknown]
  - Sedation [Unknown]
